FAERS Safety Report 6727051-6 (Version None)
Quarter: 2010Q2

REPORT INFORMATION
  Report Type: 
  Country: None (occurrence: None)
  Receive Date: 20100517
  Receipt Date: 20100430
  Transmission Date: 20101027
  Serious: Yes (Hospitalization, Other)
  Sender: FDA-Public Use
  Company Number: US-BAYER-200930294NA

PATIENT
  Age: 50 Year
  Sex: Female
  Weight: 102 kg

DRUGS (7)
  1. YAZ [Suspect]
     Indication: CONTRACEPTION
     Dosage: 1 TAB/DAILY
     Route: 048
     Dates: start: 20040901, end: 20041201
  2. YASMIN [Suspect]
     Indication: CONTRACEPTION
     Dosage: 1 TAB/DAILY
     Route: 048
     Dates: start: 20041001
  3. ESTROVEN [Concomitant]
  4. CYCLESSA [Concomitant]
     Indication: MENORRHAGIA
     Dates: start: 20040925
  5. VOLTAREN [Concomitant]
     Dates: end: 20041210
  6. IBUPROFEN [Concomitant]
     Dates: end: 20041210
  7. PRAVACHOL [Concomitant]
     Indication: BLOOD CHOLESTEROL INCREASED

REACTIONS (10)
  - BACK PAIN [None]
  - DEEP VEIN THROMBOSIS [None]
  - DYSPNOEA [None]
  - GASTRITIS [None]
  - HAEMATOCHEZIA [None]
  - HAEMOPTYSIS [None]
  - OEDEMA PERIPHERAL [None]
  - PLEURITIC PAIN [None]
  - PULMONARY EMBOLISM [None]
  - PULMONARY INFARCTION [None]
